FAERS Safety Report 6017836-6 (Version None)
Quarter: 2008Q4

REPORT INFORMATION
  Report Type: 
  Country: None (occurrence: None)
  Receive Date: 20081223
  Receipt Date: 20081215
  Transmission Date: 20090506
  Serious: Yes (Other)
  Sender: FDA-Public Use
  Company Number: IT-TEVA-182752ISR

PATIENT
  Age: 67 Year
  Sex: Male

DRUGS (1)
  1. SOTALOL HCL [Suspect]
     Indication: ATRIAL FLUTTER

REACTIONS (1)
  - BRUGADA SYNDROME [None]
